FAERS Safety Report 9338367 (Version 2)
Quarter: 2013Q2

REPORT INFORMATION
  Report Type: Spontaneous
  Country: US (occurrence: US)
  Receive Date: 20130610
  Receipt Date: 20130625
  Transmission Date: 20140414
  Serious: No
  Sender: FDA-Public Use
  Company Number: US-PFIZER INC-2013173114

PATIENT
  Age: 56 Year
  Sex: Female
  Weight: 59.86 kg

DRUGS (12)
  1. NEURONTIN [Suspect]
     Indication: NEUROPATHY PERIPHERAL
     Dosage: 100 MG, 1X/DAY
     Dates: start: 201305, end: 201305
  2. XANAX [Interacting]
     Dosage: UNK
  3. XALATAN [Interacting]
     Dosage: UNK
     Route: 047
  4. ALBUTEROL [Interacting]
     Dosage: UNK
  5. VITAMIN D [Interacting]
     Dosage: UNK
  6. FOSAMAX [Interacting]
     Dosage: UNK
  7. PLAQUENIL [Interacting]
     Dosage: UNK
  8. PROVIGIL [Interacting]
     Dosage: UNK
  9. FLOVENT [Interacting]
     Dosage: UNK
  10. LIDODERM [Interacting]
     Indication: PAIN
     Dosage: UNK
  11. PARAFON FORTE [Interacting]
     Dosage: UNK
  12. ULTRAM [Interacting]
     Dosage: UNK

REACTIONS (14)
  - Intentional drug misuse [Unknown]
  - Drug interaction [Unknown]
  - Anaesthesia [Recovered/Resolved]
  - Fatigue [Recovered/Resolved]
  - Feeling abnormal [Recovered/Resolved]
  - Asthenia [Recovered/Resolved]
  - Dysarthria [Recovered/Resolved]
  - Gait disturbance [Recovered/Resolved]
  - Hypoaesthesia [Recovered/Resolved]
  - Somnolence [Recovered/Resolved]
  - Hypersomnia [Recovered/Resolved]
  - Paraesthesia [Recovered/Resolved]
  - Drug intolerance [Unknown]
  - Neuralgia [Not Recovered/Not Resolved]
